FAERS Safety Report 7656789-1 (Version None)
Quarter: 2011Q3

REPORT INFORMATION
  Report Type: 
  Country: None (occurrence: None)
  Receive Date: 20110804
  Receipt Date: 20110729
  Transmission Date: 20111222
  Serious: Yes (Hospitalization)
  Sender: FDA-Public Use
  Company Number: PHHY2011DE69536

PATIENT
  Age: 67 Year
  Sex: Male

DRUGS (2)
  1. VERAPAMIL [Suspect]
     Indication: ESSENTIAL HYPERTENSION
  2. DOXAZOSIN MESYLATE [Suspect]
     Indication: ESSENTIAL HYPERTENSION
     Dosage: UNK

REACTIONS (3)
  - DYSPNOEA [None]
  - FATIGUE [None]
  - HYPERTENSION [None]
